FAERS Safety Report 15793865 (Version 1)
Quarter: 2019Q1

REPORT INFORMATION
  Report Type: Spontaneous
  Country: NZ (occurrence: NZ)
  Receive Date: 20190107
  Receipt Date: 20190107
  Transmission Date: 20190417
  Serious: Yes (Other)
  Sender: FDA-Public Use
  Company Number: NZ-AMREGENT-20182464

PATIENT
  Age: 41 Year
  Sex: Female

DRUGS (3)
  1. SALBUTAMOL [Concomitant]
     Active Substance: ALBUTEROL
     Dosage: UNKNOWN
     Route: 065
     Dates: start: 201808
  2. FERINJECT [Suspect]
     Active Substance: FERRIC CARBOXYMALTOSE
     Dosage: UNKNOWN
     Route: 040
     Dates: start: 201808
  3. TRANEXAMIC ACID. [Suspect]
     Active Substance: TRANEXAMIC ACID
     Dosage: UNKNOWN
     Route: 048
     Dates: start: 201808

REACTIONS (2)
  - Facial paralysis [Unknown]
  - Ataxia [Unknown]

NARRATIVE: CASE EVENT DATE: 201808
